FAERS Safety Report 7899024-1 (Version None)
Quarter: 2011Q4

REPORT INFORMATION
  Report Type: 
  Country: None (occurrence: None)
  Receive Date: 20111107
  Receipt Date: 20111027
  Transmission Date: 20120403
  Serious: Yes (Hospitalization, Other)
  Sender: FDA-Public Use
  Company Number: FR-ROCHE-1009344

PATIENT
  Sex: Male
  Weight: 70 kg

DRUGS (6)
  1. REPAGLINIDE [Concomitant]
  2. RANIBIZUMAB [Suspect]
     Indication: DIABETIC RETINAL OEDEMA
     Dosage: DOSE: 10 MG/ML
     Route: 050
     Dates: start: 20110804, end: 20111013
  3. RAMIPRIL [Concomitant]
  4. AMLODIPINE BESYLATE [Concomitant]
  5. PANTOPRAZOLE [Concomitant]
  6. JANUVIA [Concomitant]

REACTIONS (2)
  - INFARCTION [None]
  - DIABETES MELLITUS [None]
